FAERS Safety Report 10751392 (Version 2)
Quarter: 2015Q1

REPORT INFORMATION
  Report Type: Spontaneous
  Country: US (occurrence: US)
  Receive Date: 20150130
  Receipt Date: 20150206
  Transmission Date: 20150721
  Serious: Yes (Death, Hospitalization, Other)
  Sender: FDA-Public Use
  Company Number: US-009507513-1501USA011789

PATIENT
  Sex: Female
  Weight: 99.32 kg

DRUGS (7)
  1. BYETTA [Suspect]
     Active Substance: EXENATIDE
     Indication: TYPE 2 DIABETES MELLITUS
     Dosage: 5 MICROGRAM, BID
     Dates: start: 200701, end: 200701
  2. JANUVIA [Suspect]
     Active Substance: SITAGLIPTIN PHOSPHATE
     Indication: TYPE 2 DIABETES MELLITUS
     Dosage: 100 MG, QD
     Route: 048
     Dates: start: 20080820, end: 200910
  3. LORAZEPAM. [Concomitant]
     Active Substance: LORAZEPAM
     Dosage: 2 MG, BID
     Route: 048
     Dates: start: 20080820
  4. BYETTA [Suspect]
     Active Substance: EXENATIDE
     Dosage: 10 MICROGRAM, BID
     Route: 058
     Dates: start: 200702, end: 20080820
  5. DIOVAN HCT [Concomitant]
     Active Substance: HYDROCHLOROTHIAZIDE\VALSARTAN
     Dosage: 320MG-25MG, QD
     Route: 048
     Dates: start: 20080820
  6. BYETTA [Suspect]
     Active Substance: EXENATIDE
     Dosage: 250 MICROGRAM, UNK
     Dates: start: 200701
  7. METFORMIN [Concomitant]
     Active Substance: METFORMIN HYDROCHLORIDE
     Indication: TYPE 2 DIABETES MELLITUS
     Dosage: 500 MG-1000 MG, BID
     Route: 048

REACTIONS (12)
  - Metastases to lymph nodes [Unknown]
  - Haemorrhoids [Unknown]
  - Angiopathy [Unknown]
  - Intestinal polyp [Unknown]
  - Diverticulum [Unknown]
  - Gastritis [Unknown]
  - Dysuria [Unknown]
  - Bacteraemia [Unknown]
  - Hiatus hernia [Unknown]
  - Pancreatic carcinoma metastatic [Fatal]
  - Metastases to retroperitoneum [Unknown]
  - Device related infection [Unknown]

NARRATIVE: CASE EVENT DATE: 20090711
